FAERS Safety Report 9242231 (Version 1)
Quarter: 2013Q2

REPORT INFORMATION
  Report Type: Spontaneous
  Country: DE (occurrence: DE)
  Receive Date: 20130419
  Receipt Date: 20130419
  Transmission Date: 20140414
  Serious: Yes (Death, Other)
  Sender: FDA-Public Use
  Company Number: DE-JNJFOC-20130408548

PATIENT
  Age: 58 Year
  Sex: Female

DRUGS (5)
  1. RISPERIDONE [Suspect]
     Indication: BIPOLAR I DISORDER
     Route: 065
  2. VALPROIC ACID [Suspect]
     Indication: BIPOLAR I DISORDER
     Route: 065
  3. DULOXETINE [Suspect]
     Indication: BIPOLAR I DISORDER
     Route: 065
  4. CANDESARTAN [Suspect]
     Indication: BIPOLAR I DISORDER
     Route: 065
  5. LORAZEPAM [Suspect]
     Indication: BIPOLAR I DISORDER
     Route: 065

REACTIONS (1)
  - Hepatic failure [Fatal]
